FAERS Safety Report 21518335 (Version 1)
Quarter: 2022Q4

REPORT INFORMATION
  Report Type: Report from Study
  Country: US (occurrence: US)
  Receive Date: 20221028
  Receipt Date: 20221028
  Transmission Date: 20230113
  Serious: No
  Sender: FDA-Public Use
  Company Number: US-ABBVIE-4177744

PATIENT

DRUGS (1)
  1. VENCLEXTA [Suspect]
     Active Substance: VENETOCLAX
     Indication: Neoplasm malignant
     Dosage: 4 TABLET(S) BY MOUTH (400MG) BY MOUTH ONCE DAILY?100 MG STRENGTH
     Route: 048

REACTIONS (1)
  - Full blood count abnormal [Unknown]
